FAERS Safety Report 11717497 (Version 5)
Quarter: 2016Q3

REPORT INFORMATION
  Report Type: Spontaneous
  Country: US (occurrence: US)
  Receive Date: 20151110
  Receipt Date: 20160928
  Transmission Date: 20161109
  Serious: Yes (Other)
  Sender: FDA-Public Use
  Company Number: PHEH2015US022990

PATIENT
  Sex: Female

DRUGS (5)
  1. ONDANSETRON DR REDDY [Suspect]
     Active Substance: ONDANSETRON
     Indication: VOMITING IN PREGNANCY
     Dosage: 4 MG, PRN
     Route: 048
     Dates: start: 20110713, end: 201110
  2. ONDANSETRON [Suspect]
     Active Substance: ONDANSETRON
     Indication: VOMITING IN PREGNANCY
     Dosage: 4 MG, PRN
     Route: 048
     Dates: start: 20110801, end: 20110802
  3. ZOFRAN [Suspect]
     Active Substance: ONDANSETRON HYDROCHLORIDE
     Indication: VOMITING IN PREGNANCY
     Dosage: 4 MG, UNK
     Route: 042
     Dates: start: 20110731
  4. ZOFRAN [Suspect]
     Active Substance: ONDANSETRON HYDROCHLORIDE
     Indication: VOMITING IN PREGNANCY
     Dosage: 4 MG, UNK
     Route: 048
  5. ZOFRAN ODT [Suspect]
     Active Substance: ONDANSETRON HYDROCHLORIDE
     Indication: PRODUCT USED FOR UNKNOWN INDICATION
     Route: 048

REACTIONS (14)
  - Ovarian cyst [Unknown]
  - Emotional distress [Unknown]
  - Pelvic pain [Unknown]
  - Anxiety [Unknown]
  - Pulmonary calcification [Unknown]
  - Pain [Unknown]
  - Product use issue [Unknown]
  - Abdominal pain [Unknown]
  - Maternal exposure during pregnancy [Unknown]
  - Headache [Unknown]
  - Pulmonary granuloma [Unknown]
  - Injury [Unknown]
  - Dyspepsia [Unknown]
  - Dysuria [Unknown]
